FAERS Safety Report 8623746-8 (Version None)
Quarter: 2012Q3

REPORT INFORMATION
  Report Type: 
  Country: None (occurrence: None)
  Receive Date: 20120827
  Receipt Date: 20120821
  Transmission Date: 20120928
  Serious: Yes (Congenital Anomaly, Other)
  Sender: FDA-Public Use
  Company Number: US-PFIZER INC-2012102151

PATIENT
  Sex: Female
  Weight: 2.9 kg

DRUGS (4)
  1. CHANTIX [Concomitant]
     Dosage: STARTER PACK
     Route: 064
     Dates: start: 20081024
  2. EFFEXOR [Suspect]
     Indication: MAJOR DEPRESSION
     Dosage: 75 MG, 1X/DAY
     Route: 064
     Dates: start: 20080804, end: 20081223
  3. ZOFRAN [Concomitant]
     Dosage: 8 MG, 1X/DAY
     Route: 064
     Dates: start: 20080630
  4. CHANTIX [Concomitant]
     Dosage: 1 MG, 2X/DAY
     Route: 064
     Dates: start: 20081107

REACTIONS (3)
  - MATERNAL EXPOSURE DURING PREGNANCY [None]
  - DEVELOPMENTAL DELAY [None]
  - CONGENITAL ANOMALY [None]
